FAERS Safety Report 10430806 (Version 1)
Quarter: 2014Q3

REPORT INFORMATION
  Report Type: Spontaneous
  Country: GB (occurrence: GB)
  Receive Date: 20140904
  Receipt Date: 20140904
  Transmission Date: 20150326
  Serious: Yes (Hospitalization)
  Sender: FDA-Public Use
  Company Number: PHHY2014GB107268

PATIENT
  Age: 67 Year
  Sex: Male

DRUGS (3)
  1. SERETIDE [Suspect]
     Active Substance: FLUTICASONE FUROATE\SALMETEROL XINAFOATE
     Dosage: 1 DF, BID, 1 PUFF TWICE PER DAY
  2. SALBUTAMOL [Suspect]
     Active Substance: ALBUTEROL
  3. TIOTROPIUM [Suspect]
     Active Substance: TIOTROPIUM
     Dosage: 18 UG, QD

REACTIONS (6)
  - Sputum abnormal [Unknown]
  - Dyspnoea [Unknown]
  - Wheezing [Unknown]
  - Cough [Unknown]
  - Lower respiratory tract infection [Unknown]
  - Lung hyperinflation [Unknown]
